FAERS Safety Report 5292346-2 (Version None)
Quarter: 2007Q2

REPORT INFORMATION
  Report Type: 
  Country: None (occurrence: None)
  Receive Date: 20070410
  Receipt Date: 20070329
  Transmission Date: 20071010
  Serious: Yes (Other)
  Sender: FDA-Public Use
  Company Number: US-PFIZER INC-2007025826

PATIENT
  Sex: Female
  Weight: 103 kg

DRUGS (4)
  1. DEPO-PROVERA [Suspect]
     Indication: CONTRACEPTION
     Dosage: FREQ:FIRST INJECTION
     Route: 030
     Dates: start: 20060803, end: 20060803
  2. DEPO-PROVERA [Suspect]
     Indication: MENSTRUAL DISCOMFORT
     Dosage: FREQ:SECOND INJECTION
     Route: 030
     Dates: start: 20061113, end: 20061113
  3. DEPO-PROVERA [Suspect]
     Dosage: FREQ:LAST INJECTION
     Route: 030
     Dates: start: 20070301, end: 20070301
  4. ANTIDEPRESSANTS [Concomitant]

REACTIONS (7)
  - ABDOMINAL DISTENSION [None]
  - DISCOMFORT [None]
  - INFLUENZA LIKE ILLNESS [None]
  - NAUSEA [None]
  - POLLAKIURIA [None]
  - UTERINE ENLARGEMENT [None]
  - WEIGHT FLUCTUATION [None]
